FAERS Safety Report 4596113-4 (Version None)
Quarter: 2005Q1

REPORT INFORMATION
  Report Type: 
  Country: None (occurrence: None)
  Receive Date: 20050225
  Receipt Date: 20050218
  Transmission Date: 20050727
  Serious: Yes (Other)
  Sender: FDA-Public Use
  Company Number: 163-20785-04100438

PATIENT
  Age: 28 Year
  Sex: Male

DRUGS (2)
  1. THALOMID [Suspect]
     Indication: BRAIN NEOPLASM
     Dosage: 400 MG, QD, ORAL
     Route: 048
     Dates: start: 20030725, end: 20040908
  2. CYTOXAN [Suspect]
     Indication: BRAIN NEOPLASM
     Dosage: UNKNOWN
     Route: 065
     Dates: start: 20030725, end: 20040908

REACTIONS (1)
  - PNEUMONITIS [None]
